FAERS Safety Report 4832816-1 (Version None)
Quarter: 2005Q4

REPORT INFORMATION
  Report Type: 
  Country: None (occurrence: None)
  Receive Date: 20051121
  Receipt Date: 20051007
  Transmission Date: 20060501
  Serious: Yes (Life-Threatening)
  Sender: FDA-Public Use
  Company Number: JP-AVENTIS-200512923JP

PATIENT
  Age: 34 Year
  Sex: Male
  Weight: 54.6 kg

DRUGS (3)
  1. LANTUS [Suspect]
     Indication: DIABETES MELLITUS INSULIN-DEPENDENT
     Route: 058
     Dates: start: 20050707, end: 20050926
  2. OPTICLIK (INSULIN INJECTION PEN) [Suspect]
  3. NOVOLIN R [Suspect]
     Route: 058
     Dates: start: 20041108, end: 20050926

REACTIONS (2)
  - CARDIAC ARREST [None]
  - HYPOGLYCAEMIC ENCEPHALOPATHY [None]
